FAERS Safety Report 7525181-2 (Version None)
Quarter: 2011Q2

REPORT INFORMATION
  Report Type: 
  Country: None (occurrence: None)
  Receive Date: 20110602
  Receipt Date: 20110602
  Transmission Date: 20111010
  Serious: Yes (Other)
  Sender: FDA-Public Use
  Company Number: None

PATIENT
  Age: 35 Year
  Sex: Male
  Weight: 97.7 kg

DRUGS (3)
  1. ALLEGRA [Suspect]
     Indication: MULTIPLE ALLERGIES
     Dosage: 180MG 1 DAILY ORAL
     Route: 048
     Dates: start: 20110301
  2. ALLEGRA [Suspect]
     Indication: MULTIPLE ALLERGIES
     Dosage: 180MG 1 DAILY ORAL
     Route: 048
     Dates: start: 20110414
  3. ALLEGRA [Suspect]
     Indication: MULTIPLE ALLERGIES
     Dosage: 180MG 1 DAILY ORAL
     Route: 048
     Dates: start: 20110415

REACTIONS (4)
  - EXTRASYSTOLES [None]
  - HEART RATE IRREGULAR [None]
  - DYSPNOEA [None]
  - HEART RATE INCREASED [None]
